FAERS Safety Report 20757758 (Version 1)
Quarter: 2022Q2

REPORT INFORMATION
  Report Type: Spontaneous
  Country: JP (occurrence: JP)
  Receive Date: 20220427
  Receipt Date: 20220427
  Transmission Date: 20220721
  Serious: Yes (Other)
  Sender: FDA-Public Use
  Company Number: JP-BRISTOL-MYERS SQUIBB COMPANY-2022-027225

PATIENT
  Age: 71 Year
  Sex: Male

DRUGS (1)
  1. HYDREA [Suspect]
     Active Substance: HYDROXYUREA
     Indication: Essential thrombocythaemia
     Dosage: 1-1.5 G/DAY, 29 YEARS.
     Route: 065

REACTIONS (1)
  - Actinic keratosis [Recovered/Resolved]

NARRATIVE: CASE EVENT DATE: 20190801
